FAERS Safety Report 9069516 (Version 1)
Quarter: 2013Q1

REPORT INFORMATION
  Report Type: Report from Study
  Country: US (occurrence: US)
  Receive Date: 20130131
  Receipt Date: 20130131
  Transmission Date: 20140127
  Serious: Yes (Hospitalization)
  Sender: FDA-Public Use
  Company Number: US-ABBOTT-12P-163-0980150-00

PATIENT
  Age: 32 Year
  Sex: Female
  Weight: 99.88 kg

DRUGS (15)
  1. HUMIRA [Suspect]
     Indication: CROHN^S DISEASE
     Route: 050
     Dates: start: 20120519, end: 20121007
  2. PRENATAL VITAMIN NOS [Concomitant]
     Indication: PRODUCT USED FOR UNKNOWN INDICATION
     Dosage: 1 PILL ONCE DAILY
     Route: 048
     Dates: start: 20120519
  3. CALCIUM [Concomitant]
     Indication: PRODUCT USED FOR UNKNOWN INDICATION
     Dosage: 1 PILL ONCE DAILY
     Route: 048
     Dates: start: 20120519
  4. B COMPLEX-NOS [Concomitant]
     Indication: PRODUCT USED FOR UNKNOWN INDICATION
     Dosage: 1 PILL ONCE DAILY
     Route: 048
     Dates: start: 20120519
  5. TEA [Concomitant]
     Indication: PRODUCT USED FOR UNKNOWN INDICATION
     Dosage: 1 SERVING ONCE DAILY
     Route: 048
     Dates: start: 20120519
  6. FOLLISTIM [Concomitant]
     Indication: OVULATION DISORDER
     Dosage: 1 SHOT ONCE DAILY
     Route: 050
     Dates: start: 20120519, end: 20120531
  7. OVIDREL [Concomitant]
     Indication: INFERTILITY
     Dosage: 1 SHOT ONCE DAILY
     Route: 050
     Dates: start: 20120601, end: 20120601
  8. OMEPRAZOLE [Concomitant]
     Indication: GASTROOESOPHAGEAL REFLUX DISEASE
     Route: 048
     Dates: start: 20120519
  9. ZOFRAN [Concomitant]
     Indication: NAUSEA
     Dosage: 1 PILL AS REQUIRED
     Route: 048
     Dates: start: 20120630, end: 20120830
  10. TYLENOL [Concomitant]
     Indication: HEADACHE
     Dosage: 2 PILLS AS REQUIRED
     Route: 048
     Dates: start: 20120519
  11. COLACE [Concomitant]
     Indication: CONSTIPATION
     Dosage: 1-3 PILLS AS NEEDED
     Route: 048
     Dates: start: 20120519
  12. MILK OF MAGNESIA [Concomitant]
     Indication: PRODUCT USED FOR UNKNOWN INDICATION
     Dosage: 14 WEEKS, 1 TIME
     Route: 048
     Dates: start: 20120825, end: 20120825
  13. PROBIOTICS [Concomitant]
     Indication: PRODUCT USED FOR UNKNOWN INDICATION
     Route: 048
     Dates: start: 20121006
  14. CAFFEINE [Concomitant]
     Indication: PRODUCT USED FOR UNKNOWN INDICATION
     Dosage: 1.5 SERV/WEEK
     Route: 048
     Dates: start: 20120915
  15. SUDAFED [Concomitant]
     Route: 048
     Dates: start: 20121009, end: 20121011

REACTIONS (8)
  - Pneumonia [Recovered/Resolved]
  - Vaginal haemorrhage [Recovered/Resolved]
  - Gastrooesophageal reflux disease [Unknown]
  - Nausea [Unknown]
  - Headache [Unknown]
  - Constipation [Unknown]
  - Urinary tract infection [Unknown]
  - Nasopharyngitis [Unknown]
